FAERS Safety Report 18114874 (Version 1)
Quarter: 2020Q3

REPORT INFORMATION
  Report Type: Spontaneous
  Country: CA (occurrence: CA)
  Receive Date: 20200805
  Receipt Date: 20200805
  Transmission Date: 20201103
  Serious: Yes (Hospitalization)
  Sender: FDA-Public Use
  Company Number: CA-PFIZER INC-2020294703

PATIENT
  Age: 25 Year
  Sex: Female

DRUGS (2)
  1. GABAPENTIN. [Suspect]
     Active Substance: GABAPENTIN
     Dosage: 6 G
  2. TYLENOL [Suspect]
     Active Substance: ACETAMINOPHEN
     Dosage: 6 G

REACTIONS (1)
  - Psychotic disorder [Unknown]
